FAERS Safety Report 9712421 (Version 2)
Quarter: 2014Q1

REPORT INFORMATION
  Report Type: Report from Study
  Country: US (occurrence: US)
  Receive Date: 20131126
  Receipt Date: 20140204
  Transmission Date: 20141002
  Serious: Yes (Life-Threatening, Hospitalization, Disabling, Other)
  Sender: FDA-Public Use
  Company Number: US-ALEXION-A201303791

PATIENT
  Age: 19 Year
  Sex: Male
  Weight: 69 kg

DRUGS (8)
  1. HYDRALAZINE [Concomitant]
     Indication: HYPERTENSION
     Dosage: UNK
     Route: 048
     Dates: start: 20130805
  2. METOPROLOL [Concomitant]
     Indication: HYPERTENSION
     Dosage: UNK
     Route: 048
     Dates: start: 20130805
  3. LASIX [Concomitant]
     Indication: HYPERTENSION
     Dosage: UNK
     Route: 048
     Dates: start: 20130805
  4. CLONIDIN [Concomitant]
     Indication: HYPERTENSION
     Dosage: UNK
     Route: 048
     Dates: start: 20130805
  5. NIFEDIPINE ER [Concomitant]
     Indication: HYPERTENSION
     Dosage: UNK
     Route: 048
     Dates: start: 20130805
  6. ECULIZUMAB [Suspect]
     Indication: HAEMOLYTIC URAEMIC SYNDROME
     Dosage: 900MG Q WK
     Route: 042
     Dates: start: 20130213, end: 20130305
  7. ECULIZUMAB [Suspect]
     Dosage: 1200MG Q2WK
     Dates: start: 20130313, end: 20131002
  8. AMLODIPIN [Concomitant]
     Indication: HYPERTENSION
     Dosage: UNK
     Route: 048
     Dates: start: 201302

REACTIONS (1)
  - Renal impairment [Recovered/Resolved]
